FAERS Safety Report 8408367-4 (Version None)
Quarter: 2012Q2

REPORT INFORMATION
  Report Type: 
  Country: None (occurrence: None)
  Receive Date: 20120323
  Receipt Date: 20111130
  Transmission Date: 20120825
  Serious: Yes (Other)
  Sender: FDA-Public Use
  Company Number: 163-21880-11114276

PATIENT
  Age: 83 Year
  Sex: Male
  Weight: 82.5547 kg

DRUGS (11)
  1. LIPITOR [Concomitant]
  2. ASPIRIN [Concomitant]
  3. FUROSEMIDE [Concomitant]
  4. POTASSIUM CHLORIDE [Concomitant]
  5. ALBUTEROL MDI (SALBUTAMOL) [Concomitant]
  6. REVLIMID [Suspect]
     Indication: MYELODYSPLASTIC SYNDROME
     Dosage: 5 MG,1 IN 1 D, PO ; 10-5MG, DAILY, PO ; 10 MG, 1 IN 1 D, PO
     Route: 048
     Dates: start: 20110901, end: 20110901
  7. REVLIMID [Suspect]
     Indication: MYELODYSPLASTIC SYNDROME
     Dosage: 5 MG,1 IN 1 D, PO ; 10-5MG, DAILY, PO ; 10 MG, 1 IN 1 D, PO
     Route: 048
     Dates: start: 20100603
  8. REVLIMID [Suspect]
     Indication: MYELODYSPLASTIC SYNDROME
     Dosage: 5 MG,1 IN 1 D, PO ; 10-5MG, DAILY, PO ; 10 MG, 1 IN 1 D, PO
     Route: 048
     Dates: start: 20100601
  9. METFFORMIN HYDROCHLORIDE [Concomitant]
  10. ATENOLOL [Concomitant]
  11. SPIRIVA [Concomitant]

REACTIONS (2)
  - BLOOD PRODUCT TRANSFUSION DEPENDENT [None]
  - DRUG INEFFECTIVE [None]
